FAERS Safety Report 8775787 (Version 1)
Quarter: 2012Q4

REPORT INFORMATION
  Report Type: 
  Country: US (occurrence: US)
  Receive Date: 20120906
  Receipt Date: 20120906
  Transmission Date: 20130627
  Serious: Yes (Hospitalization)
  Sender: FDA-Public Use
  Company Number: US-PFIZER INC-K201000821

PATIENT
  Age: 47 Year
  Sex: Female

DRUGS (1)
  1. TAPAZOLE [Suspect]
     Indication: BASEDOW^S DISEASE
     Dosage: UNK

REACTIONS (5)
  - Pharyngeal abscess [Recovering/Resolving]
  - Serratia test positive [Recovering/Resolving]
  - Streptococcus test positive [Recovering/Resolving]
  - Respiratory failure [Recovering/Resolving]
  - Agranulocytosis [Recovering/Resolving]
